FAERS Safety Report 7612916-3 (Version None)
Quarter: 2011Q3

REPORT INFORMATION
  Report Type: 
  Country: None (occurrence: None)
  Receive Date: 20110708
  Receipt Date: 20110623
  Transmission Date: 20111222
  Serious: Yes (Other)
  Sender: FDA-Public Use
  Company Number: TCI2011A03707

PATIENT
  Age: 63 Year
  Sex: Female

DRUGS (1)
  1. PREVPAC [Suspect]
     Dosage: PER ORAL
     Route: 048
     Dates: start: 20100201, end: 20100201

REACTIONS (1)
  - ERYTHEMA MULTIFORME [None]
